FAERS Safety Report 5619625-0 (Version None)
Quarter: 2008Q1

REPORT INFORMATION
  Report Type: 
  Country: None (occurrence: None)
  Receive Date: 20080205
  Receipt Date: 20080205
  Transmission Date: 20080703
  Serious: Yes (Life-Threatening)
  Sender: FDA-Public Use
  Company Number: None

PATIENT
  Age: 8 Year
  Sex: Male
  Weight: 21.7727 kg

DRUGS (3)
  1. ADVAIR DISKUS 100/50 [Suspect]
     Indication: ASTHMA
     Dosage: 1 PUFF DAILY INHAL
     Route: 055
     Dates: start: 20060807, end: 20060814
  2. PREDNISONE TAB [Concomitant]
  3. ALBUTEROL [Concomitant]

REACTIONS (2)
  - ANAPHYLACTIC REACTION [None]
  - NO THERAPEUTIC RESPONSE [None]
